FAERS Safety Report 11462550 (Version 1)
Quarter: 2015Q3

REPORT INFORMATION
  Report Type: Spontaneous
  Country: US (occurrence: US)
  Receive Date: 20150831
  Receipt Date: 20150831
  Transmission Date: 20151125
  Serious: Yes (Other)
  Sender: FDA-Public Use
  Company Number: US-ELI_LILLY_AND_COMPANY-US201012001248

PATIENT
  Age: 34 Year
  Sex: Female
  Weight: 45.35 kg

DRUGS (1)
  1. CYMBALTA [Suspect]
     Active Substance: DULOXETINE HYDROCHLORIDE
     Indication: ANXIETY
     Dosage: 30 MG, UNK
     Dates: start: 20101115, end: 20101115

REACTIONS (5)
  - Somnolence [Unknown]
  - Feeling drunk [Unknown]
  - Fear [Unknown]
  - Suicidal ideation [Unknown]
  - Anxiety [Unknown]

NARRATIVE: CASE EVENT DATE: 20101115
